FAERS Safety Report 20846242 (Version 1)
Quarter: 2022Q2

REPORT INFORMATION
  Report Type: Report from Study
  Country: CA (occurrence: CA)
  Receive Date: 20220518
  Receipt Date: 20220518
  Transmission Date: 20220721
  Serious: Yes (Other)
  Sender: FDA-Public Use
  Company Number: CA-GILEAD-2021-0560071

PATIENT
  Age: 59 Year
  Sex: Female
  Weight: 65 kg

DRUGS (11)
  1. SACITUZUMAB GOVITECAN [Suspect]
     Active Substance: SACITUZUMAB GOVITECAN
     Indication: Triple negative breast cancer
     Dosage: 460 MG
     Route: 042
     Dates: start: 20211130
  2. SACITUZUMAB GOVITECAN [Suspect]
     Active Substance: SACITUZUMAB GOVITECAN
     Dosage: DOSE ADMINISTRATION EARLY
     Route: 042
     Dates: start: 20211207
  3. SACITUZUMAB GOVITECAN [Suspect]
     Active Substance: SACITUZUMAB GOVITECAN
     Dosage: UNK, PATIENT RECEIVED THE 21 DAY CYCLE
     Route: 042
     Dates: start: 20211221
  4. SACITUZUMAB GOVITECAN [Suspect]
     Active Substance: SACITUZUMAB GOVITECAN
     Dosage: UNK (DAY 11)
     Route: 042
     Dates: start: 20211230, end: 20211230
  5. SACITUZUMAB GOVITECAN [Suspect]
     Active Substance: SACITUZUMAB GOVITECAN
     Dosage: UNK
     Route: 042
     Dates: start: 20220405
  6. SACITUZUMAB GOVITECAN [Suspect]
     Active Substance: SACITUZUMAB GOVITECAN
     Dosage: UNK
     Route: 042
     Dates: start: 20220412
  7. PLATINUM [Concomitant]
     Active Substance: PLATINUM
  8. ACETAMINOPHEN [Concomitant]
     Active Substance: ACETAMINOPHEN
     Dosage: 650 MG  (PRE-MEDICATION PRIOR TO TRODELVY)
  9. DIPHENHYDRAMINE [Concomitant]
     Active Substance: DIPHENHYDRAMINE
     Dosage: 50 MG  (PRE-MEDICATION PRIOR TO TRODELVY)
  10. FAMOTIDINE [Concomitant]
     Active Substance: FAMOTIDINE
     Dosage: 20 MG  (PRE-MEDICATION PRIOR TO TRODELVY)
  11. GEMCITABINE [Concomitant]
     Active Substance: GEMCITABINE

REACTIONS (21)
  - Disease progression [Not Recovered/Not Resolved]
  - Pleural effusion [Not Recovered/Not Resolved]
  - Hypertension [Unknown]
  - Platelet count decreased [Recovered/Resolved]
  - Poor venous access [Unknown]
  - Hypertension [Unknown]
  - Pain in extremity [Unknown]
  - Hypertension [Unknown]
  - Hypertension [Unknown]
  - Hypertension [Unknown]
  - Weight decreased [Not Recovered/Not Resolved]
  - Hypertension [Unknown]
  - Product administration error [Recovered/Resolved]
  - Off label use [Not Recovered/Not Resolved]
  - Weight increased [Not Recovered/Not Resolved]
  - Hypertension [Unknown]
  - Hypertension [Unknown]
  - Inappropriate schedule of product administration [Recovered/Resolved]
  - Dyspnoea exertional [Not Recovered/Not Resolved]
  - Hypertension [Unknown]
  - Weight decreased [Unknown]

NARRATIVE: CASE EVENT DATE: 20200418
